FAERS Safety Report 7999041-7 (Version None)
Quarter: 2011Q4

REPORT INFORMATION
  Report Type: 
  Country: None (occurrence: None)
  Receive Date: 20111221
  Receipt Date: 20111212
  Transmission Date: 20120403
  Serious: Yes (Other)
  Sender: FDA-Public Use
  Company Number: PHHY2011BR108837

PATIENT
  Sex: Female
  Weight: 70 kg

DRUGS (3)
  1. NAPRIX [Concomitant]
     Indication: HYPERTENSION
     Dosage: 1 DF, QD
     Route: 048
  2. FORMOTEROL FUMARATE [Suspect]
     Dosage: UNK
  3. SYNTHROID [Concomitant]
     Dosage: 1 DF, QD
     Route: 048

REACTIONS (2)
  - HYPERTENSION [None]
  - RETINAL DEGENERATION [None]
